FAERS Safety Report 4286672-3 (Version None)
Quarter: 2004Q1

REPORT INFORMATION
  Report Type: 
  Country: None (occurrence: None)
  Receive Date: 20040204
  Receipt Date: 20040122
  Transmission Date: 20041129
  Serious: Yes (Hospitalization, Other)
  Sender: FDA-Public Use
  Company Number: HQWYE537323JAN04

PATIENT
  Age: 5 Year
  Sex: Female

DRUGS (12)
  1. CHILDREN'S ADVIL [Suspect]
     Indication: EYE PAIN
     Dosage: 130 MG FOUR TIMES DAILY
     Route: 048
     Dates: start: 20010624, end: 20010627
  2. CHILDREN'S ADVIL [Suspect]
     Indication: HEADACHE
     Dosage: 130 MG FOUR TIMES DAILY
     Route: 048
     Dates: start: 20010624, end: 20010627
  3. CHILDREN'S ADVIL [Suspect]
     Indication: PYREXIA
     Dosage: 130 MG FOUR TIMES DAILY
     Route: 048
     Dates: start: 20010624, end: 20010627
  4. AMOXICILLIN [Suspect]
     Indication: BRONCHITIS
     Dosage: SEE IMAGE
     Route: 048
     Dates: start: 20010614, end: 20010601
  5. AMOXICILLIN [Suspect]
     Indication: TRACHEITIS
     Dosage: SEE IMAGE
     Route: 048
     Dates: start: 20010614, end: 20010601
  6. AMOXICILLIN [Suspect]
     Indication: BRONCHITIS
     Dosage: SEE IMAGE
     Route: 048
     Dates: start: 20010629, end: 20010701
  7. AMOXICILLIN [Suspect]
     Indication: TRACHEITIS
     Dosage: SEE IMAGE
     Route: 048
     Dates: start: 20010629, end: 20010701
  8. ACETAMINOPHEN [Suspect]
     Indication: EYE PAIN
     Dosage: 260 MG FOUR TIMES DAILY
     Route: 048
     Dates: start: 20010624
  9. ACETAMINOPHEN [Suspect]
     Indication: HEADACHE
     Dosage: 260 MG FOUR TIMES DAILY
     Route: 048
     Dates: start: 20010624
  10. ACETAMINOPHEN [Suspect]
     Indication: PYREXIA
     Dosage: 260 MG FOUR TIMES DAILY
     Route: 048
     Dates: start: 20010624
  11. UNSPECIFIED OPHTHALMIC PREPARATION (UNSPECIFIED OPHTHALMIC PREPARATION [Concomitant]
     Indication: ERYTHEMA OF EYELID
     Route: 047
     Dates: start: 20010625, end: 20010627
  12. UNSPECIFIED OPHTHALMIC PREPARATION (UNSPECIFIED OPHTHALMIC PREPARATION [Concomitant]
     Indication: EYELID OEDEMA
     Route: 047
     Dates: start: 20010625, end: 20010627

REACTIONS (2)
  - CELLULITIS [None]
  - CONDITION AGGRAVATED [None]
